FAERS Safety Report 8693820 (Version 3)
Quarter: 2012Q4

REPORT INFORMATION
  Report Type: 
  Country: GB (occurrence: GB)
  Receive Date: 20120731
  Receipt Date: 20121001
  Transmission Date: 20130627
  Serious: No
  Sender: FDA-Public Use
  Company Number: GB-JNJFOC-20120705420

PATIENT
  Age: 54 None
  Sex: Male
  Weight: 81 kg

DRUGS (12)
  1. SIMPONI [Suspect]
     Indication: PSORIATIC ARTHROPATHY
     Route: 058
     Dates: start: 20120704
  2. SIMPONI [Suspect]
     Indication: PSORIATIC ARTHROPATHY
     Route: 058
     Dates: start: 20120404
  3. SIMPONI [Suspect]
     Indication: PSORIATIC ARTHROPATHY
     Route: 058
     Dates: start: 20120604
  4. SIMPONI [Suspect]
     Indication: RHEUMATOID ARTHRITIS
     Route: 058
     Dates: start: 20120404
  5. SIMPONI [Suspect]
     Indication: RHEUMATOID ARTHRITIS
     Route: 058
     Dates: start: 20120604
  6. SIMPONI [Suspect]
     Indication: RHEUMATOID ARTHRITIS
     Route: 058
     Dates: start: 20120704
  7. METHOTREXATE [Concomitant]
     Indication: RHEUMATOID ARTHRITIS
     Route: 048
     Dates: start: 20060921
  8. OMEPRAZOLE [Concomitant]
     Indication: UNEVALUABLE EVENT
     Route: 065
  9. NICORANDIL [Concomitant]
     Route: 065
  10. TELMISARTAN [Concomitant]
     Indication: HYPERTENSION
     Route: 065
  11. AMLODIPINE [Concomitant]
     Indication: HYPERTENSION
     Route: 065
  12. FOLIC ACID [Concomitant]
     Route: 065

REACTIONS (1)
  - Urticaria [Recovered/Resolved]
